FAERS Safety Report 23940877 (Version 2)
Quarter: 2024Q2

REPORT INFORMATION
  Report Type: Spontaneous
  Country: CN (occurrence: CN)
  Receive Date: 20240605
  Receipt Date: 20240612
  Transmission Date: 20240716
  Serious: Yes (Other)
  Sender: FDA-Public Use
  Company Number: CN-002147023-NVSC2024CN117155

PATIENT
  Age: 59 Year
  Sex: Female

DRUGS (1)
  1. TOBRADEX [Suspect]
     Active Substance: DEXAMETHASONE\TOBRAMYCIN
     Indication: Symptomatic treatment
     Dosage: 2 MG, QD
     Route: 047
     Dates: start: 20240516, end: 20240516

REACTIONS (4)
  - Ophthalmic herpes zoster [Unknown]
  - Pain [Recovered/Resolved]
  - Ocular discomfort [Unknown]
  - Conjunctival hyperaemia [Unknown]

NARRATIVE: CASE EVENT DATE: 20240520
